FAERS Safety Report 7338728-6 (Version None)
Quarter: 2011Q1

REPORT INFORMATION
  Report Type: 
  Country: None (occurrence: None)
  Receive Date: 20110308
  Receipt Date: 20110228
  Transmission Date: 20110831
  Serious: Yes (Hospitalization)
  Sender: FDA-Public Use
  Company Number: B0703768A

PATIENT
  Sex: Female
  Weight: 69 kg

DRUGS (11)
  1. ALKERAN [Suspect]
     Indication: CORD BLOOD TRANSPLANT THERAPY
     Dosage: 50MGM2 PER DAY
     Route: 042
     Dates: start: 20090112, end: 20090113
  2. TACROLIMUS HYDRATE [Suspect]
     Indication: IMMUNOSUPPRESSION
     Dosage: 1.6MG PER DAY
     Route: 065
     Dates: start: 20090116
  3. GASPORT [Concomitant]
     Dosage: 20MG PER DAY
     Route: 048
     Dates: start: 20090110, end: 20090120
  4. METHYCOBAL [Concomitant]
     Dosage: 1500MCG PER DAY
     Route: 048
     Dates: start: 20090112, end: 20090120
  5. FLUDARA [Suspect]
     Indication: CORD BLOOD TRANSPLANT THERAPY
     Dosage: 30MGM2 PER DAY
     Route: 042
     Dates: start: 20090110, end: 20090115
  6. METHOTREXATE [Concomitant]
     Indication: IMMUNOSUPPRESSION
     Dosage: 15MG PER DAY
     Route: 065
     Dates: start: 20090118, end: 20090123
  7. URSO 250 [Concomitant]
     Dosage: 600MG PER DAY
     Route: 048
     Dates: start: 20090110, end: 20090205
  8. MYCOSYST [Concomitant]
     Dosage: 400MG PER DAY
     Route: 048
     Dates: start: 20090110, end: 20090120
  9. GRANISETRON HCL [Concomitant]
     Dosage: 3MG PER DAY
     Route: 042
     Dates: start: 20090110, end: 20090115
  10. CRAVIT [Concomitant]
     Dosage: 400MG PER DAY
     Route: 048
     Dates: start: 20090110, end: 20090120
  11. ZOVIRAX [Concomitant]
     Dosage: 600MG PER DAY
     Route: 048
     Dates: start: 20090110, end: 20090212

REACTIONS (2)
  - PNEUMONIA [None]
  - ACUTE GRAFT VERSUS HOST DISEASE [None]
